FAERS Safety Report 14061895 (Version 2)
Quarter: 2017Q4

REPORT INFORMATION
  Report Type: Report from Study
  Country: JP (occurrence: JP)
  Receive Date: 20171009
  Receipt Date: 20171212
  Transmission Date: 20180321
  Serious: Yes (Death)
  Sender: FDA-Public Use
  Company Number: JP-ASTRAZENECA-2016SE18824

PATIENT
  Age: 88 Year
  Sex: Female
  Weight: 53.5 kg

DRUGS (4)
  1. DONEPEZIL HYDROCHLORIDE. [Concomitant]
     Active Substance: DONEPEZIL HYDROCHLORIDE
     Indication: DEMENTIA
     Route: 048
  2. ONGLYZA [Suspect]
     Active Substance: SAXAGLIPTIN HYDROCHLORIDE
     Indication: TYPE 2 DIABETES MELLITUS
     Route: 048
     Dates: start: 20140728, end: 20160531
  3. FERROMIA [Concomitant]
     Active Substance: SODIUM FERROUS CITRATE
     Indication: IRON DEFICIENCY ANAEMIA
     Route: 048
  4. COVERSYL [Concomitant]
     Active Substance: PERINDOPRIL
     Indication: HYPERTENSION
     Route: 048

REACTIONS (3)
  - Myocardial ischaemia [Fatal]
  - Iron deficiency anaemia [Recovering/Resolving]
  - White blood cell count decreased [Recovered/Resolved]

NARRATIVE: CASE EVENT DATE: 20150306
